FAERS Safety Report 8612895-6 (Version None)
Quarter: 2012Q3

REPORT INFORMATION
  Report Type: 
  Country: None (occurrence: None)
  Receive Date: 20120822
  Receipt Date: 20110811
  Transmission Date: 20120928
  Serious: No
  Sender: FDA-Public Use
  Company Number: US-ALLERGAN-1110803US

PATIENT
  Sex: Female

DRUGS (1)
  1. SANCTURA XR [Suspect]
     Indication: IRRITABLE BOWEL SYNDROME
     Dosage: 60 MG, QAM
     Dates: start: 20110808, end: 20110811

REACTIONS (2)
  - RASH [None]
  - CHEST PAIN [None]
